FAERS Safety Report 7436763-0 (Version None)
Quarter: 2011Q2

REPORT INFORMATION
  Report Type: 
  Country: None (occurrence: None)
  Receive Date: 20110426
  Receipt Date: 20110330
  Transmission Date: 20111010
  Serious: No
  Sender: FDA-Public Use
  Company Number: US-B.I. PHARMACEUTICALS,INC./RIDGEFIELD-2011-BP-09631BP

PATIENT
  Sex: Male

DRUGS (2)
  1. NAPRELAN [Concomitant]
     Indication: URETHRITIS
  2. FLOMAX [Suspect]
     Indication: BENIGN PROSTATIC HYPERPLASIA
     Dosage: 0.4 MG
     Route: 048
     Dates: start: 20110301

REACTIONS (1)
  - URINE FLOW DECREASED [None]
